FAERS Safety Report 7437861-8 (Version None)
Quarter: 2011Q2

REPORT INFORMATION
  Report Type: 
  Country: None (occurrence: None)
  Receive Date: 20110426
  Receipt Date: 20110419
  Transmission Date: 20111010
  Serious: Yes (Hospitalization)
  Sender: FDA-Public Use
  Company Number: A0923594A

PATIENT
  Age: 65 Year
  Sex: Female

DRUGS (12)
  1. SPIRIVA [Concomitant]
  2. MAGNESIUM [Concomitant]
  3. ADVAIR DISKUS 100/50 [Suspect]
     Indication: CHRONIC OBSTRUCTIVE PULMONARY DISEASE
     Dosage: 1PUFF TWICE PER DAY
     Route: 055
     Dates: start: 20060101, end: 20110418
  4. POTASSIUM [Concomitant]
  5. METFORMIN [Concomitant]
  6. CARVEDILOL [Concomitant]
  7. DUONEB [Concomitant]
  8. ANTIBIOTICS [Concomitant]
  9. DIGOXIN [Concomitant]
  10. FUROSEMIDE [Concomitant]
  11. LISINOPRIL [Concomitant]
  12. OXYGEN [Concomitant]

REACTIONS (4)
  - PULMONARY MYCOSIS [None]
  - DYSPNOEA [None]
  - BRONCHITIS [None]
  - SECRETION DISCHARGE [None]
